FAERS Safety Report 10247604 (Version 2)
Quarter: 2015Q3

REPORT INFORMATION
  Report Type: Spontaneous
  Country: US (occurrence: US)
  Receive Date: 20140619
  Receipt Date: 20150717
  Transmission Date: 20151125
  Serious: Yes (Other)
  Sender: FDA-Public Use
  Company Number: US-SA-2014SA078405

PATIENT
  Age: 73 Year

DRUGS (6)
  1. PLAVIX [Suspect]
     Active Substance: CLOPIDOGREL BISULFATE
     Indication: STENT PLACEMENT
     Route: 048
     Dates: start: 1997, end: 20121019
  2. COUMADIN [Concomitant]
     Active Substance: WARFARIN SODIUM
     Dates: start: 20121029, end: 20130517
  3. PLAVIX [Suspect]
     Active Substance: CLOPIDOGREL BISULFATE
     Indication: MYOCARDIAL INFARCTION
     Route: 048
     Dates: start: 1997, end: 20121019
  4. ASPIRIN. [Concomitant]
     Active Substance: ASPIRIN
     Dates: start: 2010, end: 2012
  5. ASPIRIN. [Concomitant]
     Active Substance: ASPIRIN
     Dates: start: 2012
  6. PLAVIX [Suspect]
     Active Substance: CLOPIDOGREL BISULFATE
     Indication: ACUTE CORONARY SYNDROME
     Route: 048
     Dates: start: 1997, end: 20121019

REACTIONS (4)
  - Multiple injuries [Unknown]
  - Haemorrhage [Unknown]
  - Inflammation [Unknown]
  - Gastrointestinal haemorrhage [Unknown]

NARRATIVE: CASE EVENT DATE: 201110
